FAERS Safety Report 6426913-7 (Version None)
Quarter: 2009Q4

REPORT INFORMATION
  Report Type: 
  Country: None (occurrence: None)
  Receive Date: 20091104
  Receipt Date: 20090730
  Transmission Date: 20100525
  Serious: No
  Sender: FDA-Public Use
  Company Number: US-BAYER-200916201BCC

PATIENT
  Age: 39 Year
  Sex: Female

DRUGS (3)
  1. ALEVE [Suspect]
     Indication: RHEUMATOID ARTHRITIS
     Dosage: TOTAL DAILY DOSE: 660 MG  UNIT DOSE: 220 MG
     Route: 048
     Dates: start: 20090730
  2. ENBREL [Concomitant]
     Route: 065
  3. PREDNISONE TAB [Concomitant]
     Route: 065

REACTIONS (1)
  - NO ADVERSE EVENT [None]
